FAERS Safety Report 25074782 (Version 2)
Quarter: 2025Q3

REPORT INFORMATION
  Report Type: Spontaneous
  Country: US (occurrence: US)
  Receive Date: 20250313
  Receipt Date: 20250925
  Transmission Date: 20251020
  Serious: No
  Sender: SANOFI AVENTIS
  Company Number: US-SA-2025SA074403

PATIENT
  Age: 84 Year
  Sex: Female

DRUGS (2)
  1. DUPIXENT [Suspect]
     Active Substance: DUPILUMAB
     Indication: Eczema
     Dosage: 300 MG, QOW
     Route: 058
     Dates: start: 202501
  2. DUPIXENT [Suspect]
     Active Substance: DUPILUMAB
     Indication: Nasal polyps

REACTIONS (4)
  - Eye pain [Unknown]
  - Ocular discomfort [Unknown]
  - Eye discharge [Unknown]
  - Injection site bruising [Recovering/Resolving]

NARRATIVE: CASE EVENT DATE: 20250101
